FAERS Safety Report 4322695-3 (Version None)
Quarter: 2004Q1

REPORT INFORMATION
  Report Type: 
  Country: None (occurrence: None)
  Receive Date: 20040318
  Receipt Date: 20021226
  Transmission Date: 20041129
  Serious: Yes (Hospitalization)
  Sender: FDA-Public Use
  Company Number: MK200212-0306-1

PATIENT
  Sex: Female

DRUGS (1)
  1. OPTIRAY 320 [Suspect]
     Indication: COMPUTERISED TOMOGRAM
     Dosage: 100CC, IV, ONCE
     Route: 042
     Dates: start: 20021209, end: 20021209

REACTIONS (2)
  - CHOKING [None]
  - DYSPNOEA [None]
